FAERS Safety Report 13188109 (Version 3)
Quarter: 2017Q1

REPORT INFORMATION
  Report Type: Report from Study
  Country: GB (occurrence: GB)
  Receive Date: 20170206
  Receipt Date: 20170314
  Transmission Date: 20170428
  Serious: Yes (Other)
  Sender: FDA-Public Use
  Company Number: GB-UCBSA-2016042511

PATIENT
  Age: 68 Year
  Sex: Female

DRUGS (2)
  1. CERTOLIZUMAB PEGOL RA AUTOCLICKS [Suspect]
     Active Substance: CERTOLIZUMAB PEGOL
     Indication: RHEUMATOID ARTHRITIS
     Dosage: 400 MG, EV 2 WEEKS(QOW)
     Route: 058
     Dates: start: 20161107, end: 2016
  2. CERTOLIZUMAB PEGOL RA AUTOCLICKS [Suspect]
     Active Substance: CERTOLIZUMAB PEGOL
     Dosage: 200 MG, EV 2 WEEKS(QOW)
     Route: 058
     Dates: start: 2016

REACTIONS (12)
  - Lower respiratory tract infection [Recovered/Resolved]
  - Nausea [Recovered/Resolved]
  - Pruritus [Recovered/Resolved]
  - Muscle tightness [Unknown]
  - Diarrhoea [Recovered/Resolved]
  - Vomiting [Recovered/Resolved]
  - Malaise [Unknown]
  - Hyperchlorhydria [Unknown]
  - Loss of consciousness [Unknown]
  - Abdominal pain upper [Recovered/Resolved]
  - Musculoskeletal stiffness [Unknown]
  - Mass [Unknown]

NARRATIVE: CASE EVENT DATE: 2016
